FAERS Safety Report 11496382 (Version 1)
Quarter: 2015Q3

REPORT INFORMATION
  Report Type: Spontaneous
  Country: US (occurrence: US)
  Receive Date: 20150911
  Receipt Date: 20150911
  Transmission Date: 20151125
  Serious: Yes (Other)
  Sender: FDA-Public Use
  Company Number: US-PFIZER INC-2015298742

PATIENT
  Age: 68 Year
  Sex: Female
  Weight: 77 kg

DRUGS (3)
  1. XALATAN [Suspect]
     Active Substance: LATANOPROST
     Indication: GLAUCOMA
     Dosage: UNK
     Dates: start: 201306, end: 201410
  2. XALATAN [Suspect]
     Active Substance: LATANOPROST
     Dosage: UNK
     Dates: start: 201502
  3. SIMBRINZA [Concomitant]
     Active Substance: BRIMONIDINE TARTRATE\BRINZOLAMIDE

REACTIONS (5)
  - Endometrial hyperplasia [Unknown]
  - Oral lichen planus [Unknown]
  - Intraocular pressure increased [Unknown]
  - Haemorrhage [Unknown]
  - Weight decreased [Unknown]

NARRATIVE: CASE EVENT DATE: 20150710
